FAERS Safety Report 9748909 (Version 2)
Quarter: 2013Q4

REPORT INFORMATION
  Report Type: Spontaneous
  Country: US (occurrence: US)
  Receive Date: 20131212
  Receipt Date: 20131212
  Transmission Date: 20140711
  Serious: No
  Sender: FDA-Public Use
  Company Number: US-INCYTE CORPORATION-2013IN001806

PATIENT
  Sex: Male

DRUGS (2)
  1. JAKAFI [Suspect]
     Dosage: 20 MG, 2 X BID
     Route: 048
  2. JAKAFI [Suspect]
     Dosage: 5 MG BID
     Dates: start: 20130408

REACTIONS (1)
  - Splenomegaly [Unknown]
